FAERS Safety Report 13102878 (Version 2)
Quarter: 2017Q1

REPORT INFORMATION
  Report Type: Report from Study
  Country: US (occurrence: US)
  Receive Date: 20170110
  Receipt Date: 20170126
  Transmission Date: 20170428
  Serious: Yes (Other)
  Sender: FDA-Public Use
  Company Number: US-ACTELION-A-NJ2017-147843

PATIENT
  Age: 73 Year
  Sex: Female

DRUGS (2)
  1. VELETRI [Suspect]
     Active Substance: EPOPROSTENOL
     Indication: PULMONARY HYPERTENSION
     Dosage: 20 UNK, UNK
     Route: 042
     Dates: start: 20161031
  2. FELODIPINE. [Concomitant]
     Active Substance: FELODIPINE

REACTIONS (5)
  - Lymphadenectomy [Unknown]
  - Dyspnoea exertional [Unknown]
  - Pain in extremity [Unknown]
  - Diarrhoea [Unknown]
  - Cough [Unknown]
